FAERS Safety Report 14928192 (Version 1)
Quarter: 2018Q2

REPORT INFORMATION
  Report Type: Spontaneous
  Country: US (occurrence: US)
  Receive Date: 20180523
  Receipt Date: 20180523
  Transmission Date: 20180711
  Serious: No
  Sender: FDA-Public Use
  Company Number: US-DRREDDYS-USA/USA/17/0088483

PATIENT
  Age: 20 Year
  Sex: Female
  Weight: 90.08 kg

DRUGS (1)
  1. ZENATANE [Suspect]
     Active Substance: ISOTRETINOIN
     Indication: ACNE
     Route: 048
     Dates: start: 20170104

REACTIONS (2)
  - Somnolence [Unknown]
  - Headache [Unknown]

NARRATIVE: CASE EVENT DATE: 20170104
